FAERS Safety Report 18283417 (Version 2)
Quarter: 2020Q4

REPORT INFORMATION
  Report Type: Report from Study
  Country: US (occurrence: US)
  Receive Date: 20200918
  Receipt Date: 20201112
  Transmission Date: 20210113
  Serious: No
  Sender: FDA-Public Use
  Company Number: NVSC2020US254529

PATIENT
  Sex: Female

DRUGS (1)
  1. COSENTYX [Suspect]
     Active Substance: SECUKINUMAB
     Indication: ANKYLOSING SPONDYLITIS
     Dosage: 300 MG, QW (BENEATH THE SKIN, USUALLY VIA INJECTION)
     Route: 058

REACTIONS (9)
  - Dizziness [Unknown]
  - Joint stiffness [Unknown]
  - Abdominal pain upper [Unknown]
  - Pain [Not Recovered/Not Resolved]
  - Drug ineffective [Unknown]
  - Abdominal distension [Unknown]
  - Diarrhoea [Unknown]
  - Contusion [Unknown]
  - Fatigue [Unknown]
